FAERS Safety Report 17646930 (Version 2)
Quarter: 2020Q2

REPORT INFORMATION
  Report Type: Report from Study
  Country: GB (occurrence: GB)
  Receive Date: 20200408
  Receipt Date: 20200410
  Transmission Date: 20200713
  Serious: Yes (Hospitalization)
  Sender: FDA-Public Use
  Company Number: GB-PFIZER INC-2020140455

PATIENT
  Age: 78 Year
  Sex: Female

DRUGS (36)
  1. FLUCLOXACILLIN [Concomitant]
     Active Substance: FLUCLOXACILLIN
     Indication: SKIN LACERATION
     Dosage: 500 MG, UNK
     Route: 048
     Dates: start: 20160630, end: 20160707
  2. FLUCLOXACILLIN [Concomitant]
     Active Substance: FLUCLOXACILLIN
     Indication: SUPERINFECTION
     Dosage: 500 MG, UNK
     Route: 048
     Dates: start: 20160303, end: 201603
  3. RAMIPRIL. [Concomitant]
     Active Substance: RAMIPRIL
     Dosage: 5 MG, UNK
     Route: 048
     Dates: start: 20160412
  4. MACROGOL [Concomitant]
     Active Substance: POLYETHYLENE GLYCOLS
     Indication: CONSTIPATION PROPHYLAXIS
     Dosage: 2 DF, UNK
     Route: 048
     Dates: start: 20150819
  5. COCODAMOL [Concomitant]
     Active Substance: ACETAMINOPHEN\CODEINE PHOSPHATE
     Indication: CELLULITIS
     Dosage: 2 DF, (TIME INTERVAL: 0.25 D)
     Route: 048
     Dates: start: 20150716
  6. COCODAMOL [Concomitant]
     Active Substance: ACETAMINOPHEN\CODEINE PHOSPHATE
     Dosage: UNK
     Route: 048
     Dates: start: 201604
  7. PARACETAMOL [Concomitant]
     Active Substance: ACETAMINOPHEN
     Indication: ABDOMINAL PAIN
     Dosage: 1 G, UNK
     Route: 048
     Dates: start: 20160714
  8. DIGOXIN. [Concomitant]
     Active Substance: DIGOXIN
     Dosage: 125 MG, 1X/DAY
     Route: 048
  9. LANSOPRAZOLE. [Concomitant]
     Active Substance: LANSOPRAZOLE
     Dosage: 15 MG, 1X/DAY
     Route: 048
     Dates: start: 20160412
  10. DIGOXIN. [Concomitant]
     Active Substance: DIGOXIN
     Dosage: 125 MG, 1X/DAY
     Route: 048
     Dates: start: 20150519
  11. OMEPRAZOLE. [Concomitant]
     Active Substance: OMEPRAZOLE
     Dosage: 20 MG, 1X/DAY
     Route: 048
     Dates: start: 20150519, end: 20160412
  12. TRIMETHOPRIM. [Concomitant]
     Active Substance: TRIMETHOPRIM
     Dosage: 200 MG, UNK
     Route: 048
     Dates: start: 20160411
  13. EXEMESTANE. [Suspect]
     Active Substance: EXEMESTANE
     Indication: BREAST CANCER METASTATIC
     Dosage: 25 MG, UNK
     Route: 048
     Dates: start: 20160113
  14. SIMVASTATIN. [Concomitant]
     Active Substance: SIMVASTATIN
     Dosage: 20 MG, 1X/DAY
     Route: 048
     Dates: start: 20150519, end: 20160412
  15. ASPIRIN [ACETYLSALICYLIC ACID] [Concomitant]
     Active Substance: ASPIRIN
     Dosage: 75 MG, 1X/DAY
     Route: 048
     Dates: start: 20150519
  16. ASPIRIN [ACETYLSALICYLIC ACID] [Concomitant]
     Active Substance: ASPIRIN
     Dosage: 75 MG, 1X/DAY
     Route: 048
     Dates: start: 20160403, end: 20160412
  17. TAZOCIN [Concomitant]
     Active Substance: PIPERACILLIN SODIUM\TAZOBACTAM SODIUM
     Indication: LOWER RESPIRATORY TRACT INFECTION
     Dosage: UNK
     Route: 042
     Dates: start: 20160305, end: 201603
  18. PARACETAMOL [Concomitant]
     Active Substance: ACETAMINOPHEN
     Indication: LOWER RESPIRATORY TRACT INFECTION
     Dosage: 1 G, UNK
     Route: 048
     Dates: start: 20160303
  19. TRAMADOL. [Concomitant]
     Active Substance: TRAMADOL
     Indication: CELLULITIS
     Dosage: 50 MG, (TIME INTERVAL: 0.25 D)
     Route: 048
     Dates: start: 20150716
  20. LETROZOLE. [Suspect]
     Active Substance: LETROZOLE
     Indication: BREAST CANCER METASTATIC
     Dosage: 2.5 MG, 1X/DAY
     Route: 048
     Dates: start: 20150819, end: 20160113
  21. DENOSUMAB [Suspect]
     Active Substance: DENOSUMAB
     Indication: BREAST CANCER METASTATIC
     Dosage: 120 MG, MONTHLY
     Route: 058
     Dates: start: 20150602
  22. DENOSUMAB [Suspect]
     Active Substance: DENOSUMAB
     Dosage: 120 MG, UNK
     Route: 042
     Dates: start: 20150530, end: 20150728
  23. METRONIDAZOLE. [Concomitant]
     Active Substance: METRONIDAZOLE
     Indication: TOOTH EXTRACTION
     Dosage: 400 MG, (TIME INTERVAL: 0.33 D)
     Route: 048
     Dates: end: 20150916
  24. BENDROFLUMETHIAZIDE [Concomitant]
     Active Substance: BENDROFLUMETHIAZIDE
     Indication: HYPERTENSION
     Dosage: 2.5 MG, 1X/DAY
     Route: 048
     Dates: start: 20160412
  25. ATORVASTATIN [Concomitant]
     Active Substance: ATORVASTATIN
     Dosage: 40 MG, UNK
     Route: 048
     Dates: start: 20160412
  26. TRASTUZUMAB/VORHYALURONIDASE ALFA [Suspect]
     Active Substance: HYALURONIDASE (HUMAN RECOMBINANT)\TRASTUZUMAB
     Indication: BREAST CANCER METASTATIC
     Dosage: 600 MG, EVERY 3 WEEKS
     Route: 058
     Dates: start: 20150819, end: 20160323
  27. ANASTROZOLE. [Suspect]
     Active Substance: ANASTROZOLE
     Indication: BREAST CANCER METASTATIC
     Dosage: 25 MG, 1X/DAY
     Route: 048
     Dates: start: 20160113
  28. SENNA [Concomitant]
     Active Substance: SENNA LEAF\SENNOSIDES\SENNOSIDES A AND B
     Indication: LOWER RESPIRATORY TRACT INFECTION
     Dosage: 7.5 MG, 1X/DAY
     Route: 048
     Dates: start: 201603
  29. DOCUSATE SODIUM. [Concomitant]
     Active Substance: DOCUSATE SODIUM
     Indication: LOWER RESPIRATORY TRACT INFECTION
     Dosage: 100 MG, UNK
     Route: 048
     Dates: start: 201603
  30. FUROSEMIDE. [Concomitant]
     Active Substance: FUROSEMIDE
     Dosage: 20 MG, 1X/DAY
     Route: 048
  31. LACTULOSE. [Concomitant]
     Active Substance: LACTULOSE
     Indication: PROPHYLAXIS
     Dosage: 15 ML, UNK
     Route: 048
     Dates: start: 20150716
  32. GLYCEROL [Concomitant]
     Active Substance: GLYCERIN
     Indication: CONSTIPATION PROPHYLAXIS
     Dosage: 4 G, (PR)
     Route: 054
     Dates: start: 20150819
  33. FULVESTRANT. [Suspect]
     Active Substance: FULVESTRANT
     Indication: BREAST CANCER METASTATIC
     Dosage: 250 MG, EVERY 3 WEEKS
     Route: 058
     Dates: start: 20150331, end: 20150728
  34. CLARITHROMYCIN. [Concomitant]
     Active Substance: CLARITHROMYCIN
     Indication: LOWER RESPIRATORY TRACT INFECTION
     Dosage: UNK
     Route: 042
     Dates: start: 20160305, end: 201603
  35. ADCAL D3 [Concomitant]
     Active Substance: CALCIUM CARBONATE\CHOLECALCIFEROL
     Dosage: UNK
     Route: 048
     Dates: start: 201604
  36. RAMIPRIL. [Concomitant]
     Active Substance: RAMIPRIL
     Dosage: 5 MG, 1X/DAY
     Route: 048
     Dates: start: 20150519, end: 20160412

REACTIONS (3)
  - Ejection fraction decreased [Not Recovered/Not Resolved]
  - Hypertension [Recovered/Resolved]
  - Cerebrovascular accident [Recovered/Resolved]

NARRATIVE: CASE EVENT DATE: 20160229
